FAERS Safety Report 13762356 (Version 1)
Quarter: 2017Q3

REPORT INFORMATION
  Report Type: Spontaneous
  Country: US (occurrence: US)
  Receive Date: 20170717
  Receipt Date: 20170717
  Transmission Date: 20171127
  Serious: Yes (Disabling)
  Sender: FDA-Public Use
  Company Number: None

PATIENT
  Age: 51 Year
  Sex: Female

DRUGS (10)
  1. ALPRAZOLAM. [Suspect]
     Active Substance: ALPRAZOLAM
     Indication: PANIC DISORDER
     Dosage: ?          QUANTITY:1 CAPSULE(S);?
     Route: 048
  2. NEXIUM [Concomitant]
     Active Substance: ESOMEPRAZOLE MAGNESIUM
  3. MAGNESIUM [Concomitant]
     Active Substance: MAGNESIUM
  4. CALCIUM [Concomitant]
     Active Substance: CALCIUM
  5. AMBIEN [Concomitant]
     Active Substance: ZOLPIDEM TARTRATE
  6. ALPRAZOLAM. [Suspect]
     Active Substance: ALPRAZOLAM
     Indication: INSOMNIA
     Dosage: ?          QUANTITY:1 CAPSULE(S);?
     Route: 048
  7. VITAMIN D3 [Concomitant]
     Active Substance: CHOLECALCIFEROL
  8. VITAMIN B12 [Concomitant]
     Active Substance: CYANOCOBALAMIN
  9. ALPRAZOLAM. [Suspect]
     Active Substance: ALPRAZOLAM
     Indication: GENERALISED ANXIETY DISORDER
     Dosage: ?          QUANTITY:1 CAPSULE(S);?
     Route: 048
  10. MULTI VITAMIN [Concomitant]
     Active Substance: VITAMINS

REACTIONS (19)
  - Neck pain [None]
  - Hyperhidrosis [None]
  - Myalgia [None]
  - Insomnia [None]
  - Paraesthesia [None]
  - Feeling cold [None]
  - Cognitive disorder [None]
  - Chills [None]
  - Loss of personal independence in daily activities [None]
  - Muscle twitching [None]
  - Withdrawal syndrome [None]
  - Tremor [None]
  - Photophobia [None]
  - Tinnitus [None]
  - Disturbance in attention [None]
  - Nausea [None]
  - Feeling hot [None]
  - Hyperacusis [None]
  - Impaired driving ability [None]

NARRATIVE: CASE EVENT DATE: 20150410
